FAERS Safety Report 21411392 (Version 1)
Quarter: 2022Q4

REPORT INFORMATION
  Report Type: Spontaneous
  Country: CN (occurrence: CN)
  Receive Date: 20221005
  Receipt Date: 20221005
  Transmission Date: 20230112
  Serious: Yes (Other)
  Sender: FDA-Public Use
  Company Number: CN-PFIZER INC-PV202200074681

PATIENT
  Age: 28 Year
  Sex: Female
  Weight: 70 kg

DRUGS (2)
  1. CYTARABINE [Suspect]
     Active Substance: CYTARABINE
     Indication: Acute lymphocytic leukaemia
     Dosage: 3.5 G, 1X/DAY
     Route: 041
     Dates: start: 20220701, end: 20220702
  2. BUSULFEX [Concomitant]
     Active Substance: BUSULFAN
     Indication: Chemotherapy
     Dosage: 45 MG, 4X/DAY
     Route: 041
     Dates: start: 20220703, end: 20220705

REACTIONS (2)
  - Liver injury [Recovering/Resolving]
  - Hepatic function abnormal [Recovering/Resolving]

NARRATIVE: CASE EVENT DATE: 20220703
